FAERS Safety Report 5781767-7 (Version None)
Quarter: 2008Q2

REPORT INFORMATION
  Report Type: 
  Country: None (occurrence: None)
  Receive Date: 20080623
  Receipt Date: 20080616
  Transmission Date: 20081010
  Serious: Yes (Hospitalization, Other)
  Sender: FDA-Public Use
  Company Number: GB-WYE-G01701508

PATIENT
  Age: 60 Year
  Sex: Male
  Weight: 75 kg

DRUGS (3)
  1. RAPAMUNE [Suspect]
     Indication: RENAL TRANSPLANT
     Route: 048
     Dates: start: 20080408, end: 20080514
  2. PREDNISOLONE [Concomitant]
     Dosage: UNKNOWN
  3. FLUOXETINE [Concomitant]
     Route: 048

REACTIONS (4)
  - DIARRHOEA [None]
  - HALLUCINATION, VISUAL [None]
  - NEPHROTIC SYNDROME [None]
  - VOMITING [None]
